APPROVED DRUG PRODUCT: DOCIVYX
Active Ingredient: DOCETAXEL
Strength: 160MG/16ML (10MG/ML)
Dosage Form/Route: SOLUTION;INTRAVENOUS
Application: N215813 | Product #003
Applicant: AVYXA HOLDINGS LLC
Approved: Nov 22, 2022 | RLD: Yes | RS: Yes | Type: RX

PATENTS:
Patent 10398785 | Expires: Mar 14, 2036